FAERS Safety Report 5129168-9 (Version None)
Quarter: 2006Q4

REPORT INFORMATION
  Report Type: 
  Country: None (occurrence: None)
  Receive Date: 20061011
  Receipt Date: 20060921
  Transmission Date: 20070319
  Serious: Yes (Other)
  Sender: FDA-Public Use
  Company Number: GB200609005266

PATIENT
  Age: 13 Year
  Sex: Female

DRUGS (2)
  1. FLUOXETINE [Suspect]
     Indication: ANXIETY
     Dosage: 20 MG, ORAL
     Route: 048
     Dates: end: 20050401
  2. IBUPROFEN [Concomitant]

REACTIONS (4)
  - FLUID RETENTION [None]
  - OVERDOSE [None]
  - SUICIDE ATTEMPT [None]
  - URINE OUTPUT DECREASED [None]
